FAERS Safety Report 6415803-1 (Version None)
Quarter: 2009Q4

REPORT INFORMATION
  Report Type: 
  Country: None (occurrence: None)
  Receive Date: 20091027
  Receipt Date: 20091015
  Transmission Date: 20100525
  Serious: Yes (Life-Threatening, Other)
  Sender: FDA-Public Use
  Company Number: DE-PFIZER INC-2009257916

PATIENT
  Age: 69 Year

DRUGS (8)
  1. DIFLUCAN [Suspect]
     Indication: MEDIASTINITIS
     Dosage: 800 MG/24H, UNK
     Route: 042
     Dates: start: 20090611, end: 20090611
  2. DIFLUCAN [Suspect]
     Dosage: 400 MG/24H, UNK
     Route: 042
     Dates: start: 20090612, end: 20090701
  3. DIFLUCAN [Suspect]
     Dosage: 400 MG/24H, UNK
     Route: 042
     Dates: start: 20090719, end: 20090805
  4. METRONIDAZOLE AND METRONIDAZOLE BENZOATE AND METRONIDAZOLE HYDROCHLORI [Suspect]
     Indication: MEDIASTINITIS
  5. MERONEM [Suspect]
     Indication: MEDIASTINITIS
  6. CIPRO [Suspect]
     Indication: MEDIASTINITIS
  7. CEFTAZIDIME [Suspect]
     Indication: MEDIASTINITIS
  8. NEPRESOL [Concomitant]

REACTIONS (4)
  - BONE MARROW FAILURE [None]
  - LEUKOPENIA [None]
  - SEPSIS [None]
  - THROMBOCYTOPENIA [None]
